FAERS Safety Report 9894237 (Version 1)
Quarter: 2014Q1

REPORT INFORMATION
  Report Type: Report from Study
  Country: US (occurrence: US)
  Receive Date: 20140213
  Receipt Date: 20140213
  Transmission Date: 20141002
  Serious: Yes (Other)
  Sender: FDA-Public Use
  Company Number: US-JNJFOC-20140202832

PATIENT
  Age: 81 Year
  Sex: Female
  Weight: 83.46 kg

DRUGS (5)
  1. XARELTO [Suspect]
     Indication: THROMBOSIS
     Route: 048
     Dates: start: 20130201
  2. LEVEMIR [Suspect]
     Indication: DIABETES MELLITUS
     Dosage: 8 UNITS.
     Route: 058
  3. METFORMIN [Concomitant]
     Indication: DIABETES MELLITUS
     Dosage: MORNING AND EVENING
     Route: 048
     Dates: start: 1995
  4. LEVOTHYROXINE [Concomitant]
     Indication: THYROID DISORDER
     Dosage: ONCE IN THE MORNING
     Route: 048
  5. GLYBURIDE [Concomitant]
     Indication: DIABETES MELLITUS
     Dosage: MORNING AND EVENING
     Route: 048

REACTIONS (4)
  - Thrombosis [Not Recovered/Not Resolved]
  - Weight increased [Not Recovered/Not Resolved]
  - Drug dose omission [Unknown]
  - Drug prescribing error [Unknown]
